FAERS Safety Report 5724202-7 (Version None)
Quarter: 2008Q2

REPORT INFORMATION
  Report Type: 
  Country: None (occurrence: None)
  Receive Date: 20080430
  Receipt Date: 20080410
  Transmission Date: 20081010
  Serious: Yes (Hospitalization)
  Sender: FDA-Public Use
  Company Number: US-GENENTECH-260210

PATIENT
  Sex: Female

DRUGS (4)
  1. BEVACIZUMAB [Suspect]
     Indication: COLON CANCER
     Dosage: 5 MG/KG, Q2W
     Route: 042
     Dates: start: 20050601
  2. ELOXATIN [Suspect]
     Indication: COLON CANCER
     Dosage: 85 MG/M2, Q14D
     Route: 042
     Dates: start: 20050601
  3. LEUCOVORIN CALCIUM [Suspect]
     Indication: COLON CANCER
     Dosage: 400 MG/M2, Q14D
     Route: 042
     Dates: start: 20050601
  4. FLUOROURACIL [Suspect]
     Indication: COLON CANCER
     Dosage: 400 MG/M2, Q14D
     Dates: start: 20050601

REACTIONS (12)
  - AORTIC ARTERIOSCLEROSIS [None]
  - ARRHYTHMIA SUPRAVENTRICULAR [None]
  - CATHETER RELATED INFECTION [None]
  - HYPERTENSION [None]
  - HYPOKINESIA [None]
  - INTERVERTEBRAL DISC PROTRUSION [None]
  - LUNG INFILTRATION [None]
  - NODAL ARRHYTHMIA [None]
  - OSTEOARTHRITIS [None]
  - ROTATOR CUFF SYNDROME [None]
  - SUPRAVENTRICULAR TACHYCARDIA [None]
  - TREATMENT NONCOMPLIANCE [None]
